FAERS Safety Report 22055982 (Version 2)
Quarter: 2023Q1

REPORT INFORMATION
  Report Type: Spontaneous
  Country: MT (occurrence: MT)
  Receive Date: 20230302
  Receipt Date: 20230314
  Transmission Date: 20230417
  Serious: Yes (Hospitalization)
  Sender: FDA-Public Use
  Company Number: MT-TEVA-2023-MT-2860767

PATIENT
  Age: 4 Decade
  Sex: Male

DRUGS (5)
  1. RISPERIDONE [Suspect]
     Active Substance: RISPERIDONE
     Indication: Substance-induced psychotic disorder
     Route: 065
  2. HALOPERIDOL [Suspect]
     Active Substance: HALOPERIDOL
     Indication: Substance-induced psychotic disorder
     Route: 030
  3. PROCYCLIDINE [Suspect]
     Active Substance: PROCYCLIDINE
     Indication: Musculoskeletal stiffness
     Dosage: 10 MILLIGRAM DAILY; 5MG TWICE DAILY
     Route: 065
  4. PROCYCLIDINE [Suspect]
     Active Substance: PROCYCLIDINE
     Indication: Trismus
  5. LORAZEPAM [Concomitant]
     Active Substance: LORAZEPAM
     Indication: Substance-induced psychotic disorder
     Route: 030

REACTIONS (3)
  - Musculoskeletal stiffness [Unknown]
  - Trismus [Unknown]
  - Delirium [Recovered/Resolved]
